FAERS Safety Report 6188544-6 (Version None)
Quarter: 2009Q2

REPORT INFORMATION
  Report Type: 
  Country: None (occurrence: None)
  Receive Date: 20090513
  Receipt Date: 20090430
  Transmission Date: 20091009
  Serious: Yes (Hospitalization)
  Sender: FDA-Public Use
  Company Number: DE-AMGEN-US308039

PATIENT
  Sex: Male

DRUGS (4)
  1. ENBREL [Suspect]
     Indication: PSORIASIS
     Route: 058
     Dates: start: 20050421, end: 20080101
  2. ENBREL [Suspect]
     Indication: PSORIATIC ARTHROPATHY
  3. LANTAREL [Concomitant]
     Indication: PSORIASIS
     Route: 058
     Dates: start: 19970101
  4. LANTAREL [Concomitant]
     Indication: PSORIATIC ARTHROPATHY

REACTIONS (3)
  - LYMPHOID TISSUE HYPERPLASIA [None]
  - OROPHARYNGEAL NEOPLASM [None]
  - TONGUE NEOPLASM BENIGN [None]
